FAERS Safety Report 10215028 (Version 2)
Quarter: 2014Q2

REPORT INFORMATION
  Report Type: Spontaneous
  Country: NO (occurrence: NO)
  Receive Date: 20140603
  Receipt Date: 20140616
  Transmission Date: 20141212
  Serious: Yes (Life-Threatening, Disabling)
  Sender: FDA-Public Use
  Company Number: NO-PFIZER INC-2014150625

PATIENT
  Age: 70 Year
  Sex: Female

DRUGS (4)
  1. CORDARONE [Suspect]
     Indication: ATRIAL FIBRILLATION
     Dosage: 250 MG, DAILY
     Route: 048
     Dates: start: 20130822, end: 20140508
  2. ERYTHROMYCIN [Interacting]
     Indication: PNEUMONIA
     Dosage: UNK
     Route: 065
     Dates: start: 20140414, end: 20140426
  3. METOPROLOL [Concomitant]
     Dosage: UNK
  4. XARELTO [Concomitant]
     Dosage: UNK

REACTIONS (2)
  - Pulmonary fibrosis [Recovering/Resolving]
  - Drug interaction [Recovering/Resolving]
